FAERS Safety Report 5731917-3 (Version None)
Quarter: 2008Q2

REPORT INFORMATION
  Report Type: 
  Country: None (occurrence: None)
  Receive Date: 20080506
  Receipt Date: 20080506
  Transmission Date: 20081010
  Serious: Yes (Other)
  Sender: FDA-Public Use
  Company Number: None

PATIENT
  Age: 51 Year
  Sex: Female
  Weight: 99.7913 kg

DRUGS (2)
  1. LYRICA [Suspect]
     Indication: ARTHRITIS
     Dosage: 75MG 2X DAY
     Dates: start: 20080105, end: 20080401
  2. LYRICA [Suspect]
     Indication: FIBROMYALGIA
     Dosage: 75MG 2X DAY
     Dates: start: 20080105, end: 20080401

REACTIONS (2)
  - TINNITUS [None]
  - VERTIGO [None]
